FAERS Safety Report 6407617-3 (Version None)
Quarter: 2009Q4

REPORT INFORMATION
  Report Type: 
  Country: None (occurrence: None)
  Receive Date: 20091020
  Receipt Date: 20091007
  Transmission Date: 20100525
  Serious: Yes (Hospitalization, Other)
  Sender: FDA-Public Use
  Company Number: PHHY2009BR43722

PATIENT
  Age: 37 Year
  Sex: Male

DRUGS (3)
  1. EXFORGE [Suspect]
     Indication: HYPERTENSION
     Dosage: 1 TABLET OF VALSARTAN IN THE MORNING AND ONE TABLET OF AMLODIPINE BESYLATE AT NIGHT
     Route: 048
     Dates: start: 20050101
  2. HYDROCHLOROTHIAZIDE [Concomitant]
     Indication: HYPERTENSION
     Dosage: 1 TABLET (25 MG) DAILY
     Route: 048
     Dates: start: 20040101
  3. AAS [Concomitant]
     Indication: ANTICOAGULANT THERAPY
     Dosage: 1 TABLET (100 MG) AFTER LUNCH
     Route: 048
     Dates: start: 20040101

REACTIONS (6)
  - CONVULSION [None]
  - DIZZINESS [None]
  - FALL [None]
  - HEAD INJURY [None]
  - HYPOACUSIS [None]
  - WEIGHT INCREASED [None]
